FAERS Safety Report 20202517 (Version 2)
Quarter: 2021Q4

REPORT INFORMATION
  Report Type: Spontaneous
  Country: CA (occurrence: CA)
  Receive Date: 20211218
  Receipt Date: 20211221
  Transmission Date: 20220303
  Serious: Yes (Other)
  Sender: FDA-Public Use
  Company Number: CA-SA-2021SA417734

PATIENT

DRUGS (2)
  1. LIBTAYO [Suspect]
     Active Substance: CEMIPLIMAB-RWLC
     Indication: Squamous cell carcinoma of skin
     Dosage: 350 MG, Q3W
  2. LIBTAYO [Suspect]
     Active Substance: CEMIPLIMAB-RWLC
     Dosage: NUMBER OF DOSES OF PD-1 INHIBITOR BEFORE RT AND TOTAL DOSES RECEIVED WAS 0/1

REACTIONS (4)
  - Mononeuritis [Recovered/Resolved]
  - Peroneal nerve palsy [Recovered/Resolved]
  - Facial paralysis [Recovered/Resolved]
  - Metastases to lung [Unknown]
